FAERS Safety Report 14578601 (Version 1)
Quarter: 2018Q1

REPORT INFORMATION
  Report Type: Spontaneous
  Country: US (occurrence: US)
  Receive Date: 20180227
  Receipt Date: 20180227
  Transmission Date: 20180509
  Serious: Yes (Other)
  Sender: FDA-Public Use
  Company Number: None

PATIENT
  Age: 70 Year
  Sex: Female
  Weight: 90 kg

DRUGS (6)
  1. LEVOTHYROXINE. [Concomitant]
     Active Substance: LEVOTHYROXINE
  2. WARFARIN [Concomitant]
     Active Substance: WARFARIN
  3. TYLENOL [Concomitant]
     Active Substance: ACETAMINOPHEN
  4. METFORMIN [Concomitant]
     Active Substance: METFORMIN HYDROCHLORIDE
  5. BUPROPION HYDROCHLORIDE XL [Suspect]
     Active Substance: BUPROPION HYDROCHLORIDE
     Indication: ADJUSTMENT DISORDER WITH DEPRESSED MOOD
     Dosage: ?          QUANTITY:90 TABLET(S);?
     Route: 048
  6. ATORVASTIN [Concomitant]
     Active Substance: ATORVASTATIN

REACTIONS (23)
  - Urinary tract infection [None]
  - Therapy cessation [None]
  - Arthralgia [None]
  - Incontinence [None]
  - Back pain [None]
  - Pollakiuria [None]
  - Malaise [None]
  - Vision blurred [None]
  - Anger [None]
  - Asthenia [None]
  - Libido disorder [None]
  - Aphasia [None]
  - Cognitive disorder [None]
  - Bladder spasm [None]
  - Bladder irritation [None]
  - Neck pain [None]
  - Dysuria [None]
  - Memory impairment [None]
  - Muscular weakness [None]
  - Nocturia [None]
  - Myoclonus [None]
  - Suicidal ideation [None]
  - Hunger [None]

NARRATIVE: CASE EVENT DATE: 20170501
